FAERS Safety Report 4731197-1 (Version None)
Quarter: 2005Q3

REPORT INFORMATION
  Report Type: 
  Country: None (occurrence: None)
  Receive Date: 20050802
  Receipt Date: 20050725
  Transmission Date: 20060218
  Serious: Yes (Hospitalization)
  Sender: FDA-Public Use
  Company Number: 2005UW11057

PATIENT
  Age: 64 Year
  Sex: Male

DRUGS (2)
  1. CRESTOR [Suspect]
     Route: 048
  2. ENALIPRIL [Suspect]

REACTIONS (2)
  - MYOGLOBIN BLOOD INCREASED [None]
  - VOMITING [None]
